FAERS Safety Report 7269874-3 (Version None)
Quarter: 2011Q1

REPORT INFORMATION
  Report Type: 
  Country: None (occurrence: None)
  Receive Date: 20110202
  Receipt Date: 20110126
  Transmission Date: 20110831
  Serious: Yes (Life-Threatening)
  Sender: FDA-Public Use
  Company Number: FR-ASTELLAS-2011EU000336

PATIENT
  Sex: Male

DRUGS (2)
  1. PROTOPIC [Suspect]
     Indication: DERMATITIS ATOPIC
     Dosage: 0.03 %, UNKNOWN/D
     Route: 065
     Dates: start: 20090119
  2. PROTOPIC [Suspect]
     Dosage: 0.03 %, UNKNOWN/D
     Route: 065
     Dates: start: 20100203

REACTIONS (4)
  - DRUG PRESCRIBING ERROR [None]
  - METASTASIS [None]
  - DRUG ADMINISTRATION ERROR [None]
  - NEPHROBLASTOMA [None]
